FAERS Safety Report 14731353 (Version 3)
Quarter: 2018Q2

REPORT INFORMATION
  Report Type: Spontaneous
  Country: ES (occurrence: ES)
  Receive Date: 20180407
  Receipt Date: 20180427
  Transmission Date: 20180711
  Serious: Yes (Hospitalization)
  Sender: FDA-Public Use
  Company Number: ES-ROCHE-2102009

PATIENT
  Age: 48 Year
  Sex: Female

DRUGS (5)
  1. PREGABALIN. [Concomitant]
     Active Substance: PREGABALIN
     Indication: DETOXIFICATION
     Route: 050
  2. CLONAZEPAM. [Suspect]
     Active Substance: CLONAZEPAM
     Route: 065
  3. DIAZEPAM. [Suspect]
     Active Substance: DIAZEPAM
     Indication: ADJUSTMENT DISORDER
     Dosage: 10-15 MG
     Route: 065
  4. PAROXETINE. [Suspect]
     Active Substance: PAROXETINE
     Indication: PRODUCT USED FOR UNKNOWN INDICATION
     Route: 065
  5. CLONAZEPAM. [Suspect]
     Active Substance: CLONAZEPAM
     Indication: ADJUSTMENT DISORDER
     Dosage: 8-10 MG
     Route: 065

REACTIONS (6)
  - Anxiety [Recovering/Resolving]
  - Product use in unapproved indication [Unknown]
  - Cognitive disorder [Recovering/Resolving]
  - Irritability [Recovering/Resolving]
  - Drug abuse [Recovering/Resolving]
  - Memory impairment [Recovering/Resolving]
